FAERS Safety Report 5791978-2 (Version None)
Quarter: 2008Q2

REPORT INFORMATION
  Report Type: 
  Country: None (occurrence: None)
  Receive Date: 20080618
  Receipt Date: 20080327
  Transmission Date: 20081010
  Serious: Yes (Other)
  Sender: FDA-Public Use
  Company Number: 200811683US

PATIENT
  Age: 53 Year
  Sex: Male

DRUGS (4)
  1. LANTUS [Suspect]
     Indication: TYPE 1 DIABETES MELLITUS
     Dosage: 22 U QD SC
     Route: 058
     Dates: start: 20030101
  2. INSULIN LISPRO (HUMALOG /01293501/) [Concomitant]
  3. ANTIHYPERTENSIVE NOS [Concomitant]
  4. HIGH CHOLESTEROL MEDICATION [Concomitant]

REACTIONS (5)
  - BLOOD GLUCOSE DECREASED [None]
  - DIZZINESS [None]
  - FALL [None]
  - HYPOGLYCAEMIA [None]
  - LIMB INJURY [None]
